FAERS Safety Report 19899727 (Version 1)
Quarter: 2021Q3

REPORT INFORMATION
  Report Type: Spontaneous
  Country: US (occurrence: US)
  Receive Date: 20210930
  Receipt Date: 20210930
  Transmission Date: 20211014
  Serious: Yes (Life-Threatening, Hospitalization, Disabling, Other)
  Sender: FDA-Public Use
  Company Number: None

PATIENT
  Age: 55 Year
  Sex: Female
  Weight: 58.5 kg

DRUGS (2)
  1. VITAMIN D [Concomitant]
     Active Substance: VITAMIN D NOS
  2. NP THYROID [Suspect]
     Active Substance: LEVOTHYROXINE\LIOTHYRONINE

REACTIONS (7)
  - Product substitution issue [None]
  - Body temperature decreased [None]
  - Drug ineffective [None]
  - Bradycardia [None]
  - Adverse drug reaction [None]
  - Blood thyroid stimulating hormone increased [None]
  - Product quality issue [None]

NARRATIVE: CASE EVENT DATE: 20210827
